FAERS Safety Report 21059398 (Version 2)
Quarter: 2022Q3

REPORT INFORMATION
  Report Type: Report from Study
  Country: US (occurrence: US)
  Receive Date: 20220708
  Receipt Date: 20220728
  Transmission Date: 20221026
  Serious: Yes (Hospitalization, Other)
  Sender: FDA-Public Use
  Company Number: US-BAYER-2022A091202

PATIENT
  Age: 72 Year
  Sex: Female
  Weight: 91.156 kg

DRUGS (2)
  1. ADEMPAS [Suspect]
     Active Substance: RIOCIGUAT
     Indication: Pulmonary arterial hypertension
     Dosage: 1 MG, TID
     Route: 048
     Dates: start: 20220614
  2. ELIQUIS [Concomitant]
     Active Substance: APIXABAN
     Dosage: UNK

REACTIONS (9)
  - Abnormal loss of weight [None]
  - Vertigo [None]
  - Blood potassium decreased [None]
  - Nausea [None]
  - Constipation [None]
  - Dyspepsia [None]
  - Oesophageal pain [None]
  - Nausea [None]
  - Nodule [None]

NARRATIVE: CASE EVENT DATE: 20220601
